FAERS Safety Report 13263850 (Version 1)
Quarter: 2017Q1

REPORT INFORMATION
  Report Type: Spontaneous
  Country: US (occurrence: US)
  Receive Date: 20170222
  Receipt Date: 20170222
  Transmission Date: 20170428
  Serious: Yes (Other)
  Sender: FDA-Public Use
  Company Number: None

PATIENT
  Age: 42 Year
  Sex: Female

DRUGS (4)
  1. BABY ASPIRIN [Concomitant]
     Active Substance: ASPIRIN
  2. FLONASE [Concomitant]
     Active Substance: FLUTICASONE PROPIONATE
  3. LISINOPRIL. [Concomitant]
     Active Substance: LISINOPRIL
  4. MELOXICAM 15MG TABLET [Suspect]
     Active Substance: MELOXICAM
     Indication: PLANTAR FASCIITIS
     Dosage: ?          QUANTITY:30 TABLET(S);?
     Route: 048

REACTIONS (7)
  - Throat irritation [None]
  - Swelling face [None]
  - Feeling abnormal [None]
  - Hypoaesthesia oral [None]
  - Burning sensation [None]
  - Blister [None]
  - Facial paralysis [None]

NARRATIVE: CASE EVENT DATE: 20170221
